FAERS Safety Report 10475262 (Version 3)
Quarter: 2014Q4

REPORT INFORMATION
  Report Type: Report from Study
  Country: VN (occurrence: VN)
  Receive Date: 20140925
  Receipt Date: 20141021
  Transmission Date: 20150528
  Serious: Yes (Death, Hospitalization, Other)
  Sender: FDA-Public Use
  Company Number: PHHY2014VN065476

PATIENT
  Age: 54 Year
  Sex: Male

DRUGS (7)
  1. GLIVEC [Suspect]
     Active Substance: IMATINIB MESYLATE
     Dosage: 600 MG, DAILY
     Dates: start: 201112, end: 201312
  2. INSULIN [Concomitant]
     Active Substance: INSULIN NOS
     Indication: HYPERGLYCAEMIA
     Dosage: UNK
     Route: 065
     Dates: start: 20140401
  3. GLIVEC [Suspect]
     Active Substance: IMATINIB MESYLATE
     Indication: CHRONIC MYELOID LEUKAEMIA
     Dosage: 400 MG, DAILY
     Dates: start: 20020823, end: 201112
  4. TASIGNA [Suspect]
     Active Substance: NILOTINIB
     Indication: DRUG RESISTANCE
     Dosage: 400 MG, DAILY
     Dates: start: 20140707, end: 20140815
  5. TASIGNA [Suspect]
     Active Substance: NILOTINIB
     Indication: BLAST CRISIS IN MYELOGENOUS LEUKAEMIA
     Dosage: 800 MG, DAILY
     Dates: start: 20140328, end: 20140527
  6. TASIGNA [Suspect]
     Active Substance: NILOTINIB
     Dosage: 800 MG, DAILY
     Route: 065
     Dates: start: 20140815
  7. GLIVEC [Suspect]
     Active Substance: IMATINIB MESYLATE
     Dosage: 800 MG, DAILY
     Dates: start: 201312, end: 201401

REACTIONS (9)
  - Chronic myeloid leukaemia [Unknown]
  - Hyperglycaemia [Recovering/Resolving]
  - Drug resistance [Unknown]
  - Full blood count decreased [Fatal]
  - Blood bilirubin increased [Fatal]
  - Fatigue [Unknown]
  - Infection [Unknown]
  - Weight decreased [Unknown]
  - Blast crisis in myelogenous leukaemia [Unknown]

NARRATIVE: CASE EVENT DATE: 20140401
